FAERS Safety Report 14604152 (Version 1)
Quarter: 2018Q1

REPORT INFORMATION
  Report Type: Spontaneous
  Country: US (occurrence: US)
  Receive Date: 20180306
  Receipt Date: 20180306
  Transmission Date: 20180509
  Serious: No
  Sender: FDA-Public Use
  Company Number: None

PATIENT

DRUGS (2)
  1. RIFAMPIN. [Suspect]
     Active Substance: RIFAMPIN
  2. RIFABUTIN. [Suspect]
     Active Substance: RIFABUTIN

REACTIONS (2)
  - Product selection error [None]
  - Intercepted drug dispensing error [None]

NARRATIVE: CASE EVENT DATE: 20170920
